FAERS Safety Report 13000650 (Version 5)
Quarter: 2017Q1

REPORT INFORMATION
  Report Type: Report from Study
  Country: BE (occurrence: BE)
  Receive Date: 20161206
  Receipt Date: 20170306
  Transmission Date: 20170428
  Serious: Yes (Hospitalization)
  Sender: FDA-Public Use
  Company Number: BE-ROCHE-1855974

PATIENT
  Age: 57 Year
  Sex: Female
  Weight: 67 kg

DRUGS (10)
  1. ULTRA K [Concomitant]
     Route: 065
     Dates: start: 20161117
  2. RO 5520985 (ANG2-VEGF MAB) [Suspect]
     Active Substance: VANUCIZUMAB
     Indication: METASTATIC NEOPLASM
     Dosage: MOST RECENT DOSE PRIOR TO UPPER RESPIRATORY INFECTION - 03/NOV/2016?MOST RECENT DOSE PRIOR TO PLEURI
     Route: 042
     Dates: start: 20161103
  3. ATEZOLIZUMAB [Suspect]
     Active Substance: ATEZOLIZUMAB
     Indication: METASTATIC NEOPLASM
     Dosage: MOST RECENT DOSE PRIOR TO UPPER RESPIRATORY TRACT INFECTION ONSET 03/NOV/2016?MOST RECENT DOSE PRIOR
     Route: 042
     Dates: start: 20161103
  4. OMEPRAZOLE. [Concomitant]
     Active Substance: OMEPRAZOLE
     Route: 065
     Dates: start: 20161117
  5. OXYCONTIN [Concomitant]
     Active Substance: OXYCODONE HYDROCHLORIDE
     Route: 065
     Dates: start: 20161118, end: 20161119
  6. ZYRTEC [Concomitant]
     Active Substance: CETIRIZINE HYDROCHLORIDE
     Route: 065
     Dates: start: 20161119
  7. STESOLID [Concomitant]
     Active Substance: DIAZEPAM
     Route: 065
     Dates: start: 1991
  8. PARACETAMOL [Concomitant]
     Active Substance: ACETAMINOPHEN
     Route: 065
  9. IBUPROFEN. [Concomitant]
     Active Substance: IBUPROFEN
     Route: 065
  10. CETIRIZINE [Concomitant]
     Active Substance: CETIRIZINE HYDROCHLORIDE
     Route: 065
     Dates: start: 20161119

REACTIONS (2)
  - Pleurisy [Recovered/Resolved]
  - Upper respiratory tract infection [Recovered/Resolved]

NARRATIVE: CASE EVENT DATE: 20161115
